FAERS Safety Report 4681525-0 (Version None)
Quarter: 2005Q2

REPORT INFORMATION
  Report Type: 
  Country: None (occurrence: None)
  Receive Date: 20050602
  Receipt Date: 20050520
  Transmission Date: 20051028
  Serious: Yes (Hospitalization, Other)
  Sender: FDA-Public Use
  Company Number: 2005078242

PATIENT
  Age: 65 Year
  Sex: Female
  Weight: 102.0593 kg

DRUGS (7)
  1. BEXTRA [Suspect]
     Indication: ARTHRITIS
     Dosage: 20 MG (20 MG 1 IN 1 D) ORAL
     Route: 048
     Dates: start: 20030101, end: 20050201
  2. CARDIZEM CD [Concomitant]
  3. MAXZIDE [Concomitant]
  4. WELLBUTRIN [Concomitant]
  5. PROZAC [Concomitant]
  6. SINGULAIR^DIECKMANN^ (MONTELEUKAST SODIUM) [Concomitant]
  7. ALBUTEROL [Concomitant]

REACTIONS (3)
  - DEEP VEIN THROMBOSIS [None]
  - POSTOPERATIVE THROMBOSIS [None]
  - WEIGHT FLUCTUATION [None]
